FAERS Safety Report 23113113 (Version 2)
Quarter: 2023Q4

REPORT INFORMATION
  Report Type: Spontaneous
  Country: IT (occurrence: IT)
  Receive Date: 20231027
  Receipt Date: 20231107
  Transmission Date: 20240109
  Serious: Yes (Life-Threatening, Hospitalization, Congenital Anomaly, Other)
  Sender: FDA-Public Use
  Company Number: IT-002147023-PHHY2017IT185564

PATIENT
  Age: 33 Week
  Sex: Female
  Weight: 1.97 kg

DRUGS (6)
  1. DICLOFENAC SODIUM [Suspect]
     Active Substance: DICLOFENAC\DICLOFENAC SODIUM
     Indication: Foetal exposure during pregnancy
     Dosage: MATERNAL DOSE: 100-200  MG, QD
     Route: 064
  2. DICLOFENAC SODIUM [Suspect]
     Active Substance: DICLOFENAC\DICLOFENAC SODIUM
     Dosage: MATERNAL DOSE: 75 MG, QD
     Route: 064
  3. NIMESULIDE [Suspect]
     Active Substance: NIMESULIDE
     Dosage: MATERNAL DOSE: 100 MG, QD
     Route: 065
  4. NIMESULIDE [Suspect]
     Active Substance: NIMESULIDE
     Indication: Foetal exposure during pregnancy
     Dosage: MATERNAL DOSE: 100 -200 MG, QD
     Route: 064
  5. ACETAMINOPHEN [Suspect]
     Active Substance: ACETAMINOPHEN
     Indication: Foetal exposure during pregnancy
     Dosage: MATERNAL DOSE: 1 DF, QD (1 UG/LITRE), 8-9 G, QD FROM THE 2ND TO THE 3RD MONTH
     Route: 064
  6. ACETAMINOPHEN [Suspect]
     Active Substance: ACETAMINOPHEN
     Dosage: MATERNAL DOSE: 1-2 GRAMS/DAY FROM THE 4TH MONTH TO DELIVERY
     Route: 064

REACTIONS (11)
  - Bradycardia neonatal [Recovered/Resolved]
  - Renal failure neonatal [Recovered/Resolved]
  - Neonatal respiratory acidosis [Unknown]
  - Ductus arteriosus stenosis foetal [Recovered/Resolved]
  - Cyanosis neonatal [Recovered/Resolved]
  - Neonatal respiratory distress syndrome [Recovered/Resolved]
  - Premature baby [Unknown]
  - Polyuria [Unknown]
  - Foetal exposure during pregnancy [Unknown]
  - Specific gravity urine abnormal [Unknown]
  - Bladder disorder [Unknown]
